FAERS Safety Report 13144831 (Version 2)
Quarter: 2017Q1

REPORT INFORMATION
  Report Type: Spontaneous
  Country: JP (occurrence: JP)
  Receive Date: 20170124
  Receipt Date: 20170308
  Transmission Date: 20170428
  Serious: Yes (Other)
  Sender: FDA-Public Use
  Company Number: JP-ELI_LILLY_AND_COMPANY-JP201612008885

PATIENT
  Age: 66 Year
  Sex: Male

DRUGS (1)
  1. ERBITUX [Suspect]
     Active Substance: CETUXIMAB
     Indication: SQUAMOUS CELL CARCINOMA OF HEAD AND NECK
     Dosage: UNK UNK, UNKNOWN
     Route: 042
     Dates: start: 20160620, end: 20160728

REACTIONS (11)
  - Hyperkalaemia [Recovered/Resolved]
  - Radiation skin injury [Recovering/Resolving]
  - Dry mouth [Not Recovered/Not Resolved]
  - Pharyngeal inflammation [Recovering/Resolving]
  - Decreased appetite [Not Recovered/Not Resolved]
  - Dermatitis acneiform [Not Recovered/Not Resolved]
  - Stomatitis [Recovering/Resolving]
  - Anaemia [Recovering/Resolving]
  - Device related infection [Recovered/Resolved]
  - Hypocalcaemia [Recovering/Resolving]
  - White blood cell count decreased [Recovered/Resolved]

NARRATIVE: CASE EVENT DATE: 20160629
